FAERS Safety Report 19722412 (Version 7)
Quarter: 2021Q4

REPORT INFORMATION
  Report Type: Report from Study
  Country: JP (occurrence: JP)
  Receive Date: 20210819
  Receipt Date: 20211226
  Transmission Date: 20220303
  Serious: Yes (Death, Hospitalization)
  Sender: FDA-Public Use
  Company Number: JP-ABBVIE-21K-087-4045870-00

PATIENT
  Age: 79 Year
  Sex: Female
  Weight: 49.2 kg

DRUGS (10)
  1. VENCLEXTA [Suspect]
     Active Substance: VENETOCLAX
     Indication: Acute myeloid leukaemia
     Route: 048
     Dates: start: 20210414, end: 20210414
  2. VENCLEXTA [Suspect]
     Active Substance: VENETOCLAX
     Route: 048
     Dates: start: 20210415, end: 20210415
  3. VENCLEXTA [Suspect]
     Active Substance: VENETOCLAX
     Route: 048
     Dates: start: 20210416, end: 20210711
  4. VIDAZA [Suspect]
     Active Substance: AZACITIDINE
     Indication: Acute myeloid leukaemia
     Route: 050
     Dates: start: 20210414, end: 20210420
  5. VIDAZA [Suspect]
     Active Substance: AZACITIDINE
     Route: 050
     Dates: start: 20210512, end: 20210516
  6. VIDAZA [Suspect]
     Active Substance: AZACITIDINE
     Route: 050
     Dates: start: 20210616, end: 20210620
  7. SOLDEM 6 [Concomitant]
     Indication: Prophylaxis
     Route: 050
     Dates: end: 20210420
  8. SODIUM BICARBONATE ATLANTIC [Concomitant]
     Indication: Prophylaxis
     Route: 050
     Dates: end: 20210420
  9. FUROSEMIDE [Concomitant]
     Active Substance: FUROSEMIDE
     Indication: Prophylaxis
     Route: 050
     Dates: end: 20210420
  10. FEBUXOSTAT AB [Concomitant]
     Indication: Prophylaxis
     Route: 048
     Dates: end: 20210420

REACTIONS (3)
  - Cerebellar haemorrhage [Fatal]
  - Neutropenia [Not Recovered/Not Resolved]
  - White blood cell count decreased [Unknown]

NARRATIVE: CASE EVENT DATE: 20210101
